FAERS Safety Report 8891005 (Version 3)
Quarter: 2012Q4

REPORT INFORMATION
  Report Type: 
  Country: US (occurrence: US)
  Receive Date: 20121106
  Receipt Date: 20121211
  Transmission Date: 20130627
  Serious: Yes (Hospitalization, Other)
  Sender: FDA-Public Use
  Company Number: US-PFIZER INC-2012276512

PATIENT
  Age: 59 Year
  Sex: Female
  Weight: 57.6 kg

DRUGS (7)
  1. NEURONTIN [Suspect]
     Indication: PAIN IN LEG
     Dosage: 300 mg, 1x/day
     Route: 048
     Dates: start: 201204
  2. NEURONTIN [Suspect]
     Dosage: 100 mg, 3x/day
     Route: 048
  3. NEURONTIN [Suspect]
     Dosage: UNK
     Route: 048
  4. GLIPIZIDE [Concomitant]
     Indication: DIABETES
     Dosage: UNK
  5. LANTUS [Concomitant]
     Indication: DIABETES
     Dosage: UNK, 2x/day
  6. CELEXA [Concomitant]
     Indication: DEPRESSION
     Dosage: UNK
  7. PLAVIX [Concomitant]
     Indication: ANTICOAGULANT THERAPY
     Dosage: UNK

REACTIONS (3)
  - Nonspecific reaction [Unknown]
  - Gastric infection [Unknown]
  - Weight increased [Unknown]
